FAERS Safety Report 6334035-9 (Version None)
Quarter: 2009Q3

REPORT INFORMATION
  Report Type: 
  Country: None (occurrence: None)
  Receive Date: 20090829
  Receipt Date: 20090818
  Transmission Date: 20100115
  Serious: Yes (Other)
  Sender: FDA-Public Use
  Company Number: US-ELI_LILLY_AND_COMPANY-US200908004145

PATIENT
  Sex: Female
  Weight: 98.866 kg

DRUGS (12)
  1. BYETTA [Suspect]
     Indication: TYPE 2 DIABETES MELLITUS
     Dosage: 10 UG, 2/D
     Dates: start: 20070605, end: 20090201
  2. ASPIRIN [Concomitant]
     Dosage: 81 MG, DAILY (1/D)
  3. HUMALOG /01500801/ [Concomitant]
     Dosage: 70 U, EACH MORNING
     Dates: start: 20010701
  4. HUMALOG /01500801/ [Concomitant]
     Dosage: 45 U, EACH EVENING
     Dates: start: 20010701
  5. METFORMIN HCL [Concomitant]
     Dosage: 2000 MG, DAILY (1/D)
     Dates: start: 20000101
  6. OMEPRAZOLE [Concomitant]
     Dosage: 20 MG, DAILY (1/D)
  7. MULTI-VITAMIN [Concomitant]
  8. AFRIN /00070001/ [Concomitant]
     Dosage: UNK, 2/D
     Route: 045
  9. ALBUTEROL [Concomitant]
     Dosage: UNK, AS NEEDED
     Route: 055
  10. CLEOCIN T [Concomitant]
     Dosage: UNK, 2/D
     Route: 061
  11. FML FORTE [Concomitant]
     Dosage: UNK, AS NEEDED
     Route: 047
  12. CRESTOR [Concomitant]

REACTIONS (2)
  - ADENOCARCINOMA PANCREAS [None]
  - OFF LABEL USE [None]
